FAERS Safety Report 23771418 (Version 1)
Quarter: 2024Q2

REPORT INFORMATION
  Report Type: Spontaneous
  Country: DE (occurrence: DE)
  Receive Date: 20240423
  Receipt Date: 20240423
  Transmission Date: 20240716
  Serious: Yes (Other)
  Sender: FDA-Public Use
  Company Number: DE-002147023-NVSC2024DE080373

PATIENT
  Sex: Female

DRUGS (2)
  1. AIMOVIG [Suspect]
     Active Substance: ERENUMAB-AOOE
     Indication: Migraine prophylaxis
     Dosage: 140 MG, Q4W (EVERY 28 DAYS) (FORMULATION: PEN) (ABOUT 1 YEAR)
     Route: 065
  2. AIMOVIG [Suspect]
     Active Substance: ERENUMAB-AOOE
     Dosage: 70 MG, Q4W (EVERY 28 DAYS) (FORMULATION: PEN)(ABOUT 1 YEAR)
     Route: 065

REACTIONS (2)
  - Arrhythmia [Unknown]
  - Palpitations [Unknown]
